FAERS Safety Report 14674711 (Version 1)
Quarter: 2018Q1

REPORT INFORMATION
  Report Type: Spontaneous
  Country: US (occurrence: US)
  Receive Date: 20180323
  Receipt Date: 20180323
  Transmission Date: 20180509
  Serious: No
  Sender: FDA-Public Use
  Company Number: US-PERRIGO-17US002058

PATIENT
  Age: 83 Year
  Sex: Female
  Weight: 46.71 kg

DRUGS (2)
  1. POLYCIN [Suspect]
     Active Substance: BACITRACIN\BACITRACIN ZINC\POLYMYXIN B SULFATE
     Indication: ACCIDENTAL EXPOSURE TO PRODUCT
     Dosage: SMALL AMOUNT, BID
     Route: 047
     Dates: start: 20170215, end: 20170222
  2. POLYCIN [Suspect]
     Active Substance: BACITRACIN\BACITRACIN ZINC\POLYMYXIN B SULFATE
     Indication: EYE INFECTION
     Dosage: ONE APPLICATION, BID
     Route: 061
     Dates: start: 20170215, end: 20170222

REACTIONS (6)
  - Erythema [Not Recovered/Not Resolved]
  - Eye irritation [Not Recovered/Not Resolved]
  - Eye discharge [Not Recovered/Not Resolved]
  - Eye pruritus [Not Recovered/Not Resolved]
  - Eye swelling [Not Recovered/Not Resolved]
  - Incorrect drug administration duration [Recovered/Resolved with Sequelae]

NARRATIVE: CASE EVENT DATE: 20170217
